FAERS Safety Report 5703500-7 (Version None)
Quarter: 2008Q2

REPORT INFORMATION
  Report Type: 
  Country: None (occurrence: None)
  Receive Date: 20080411
  Receipt Date: 20080403
  Transmission Date: 20081010
  Serious: Yes (Other)
  Sender: FDA-Public Use
  Company Number: US-PFIZER INC-2008029734

PATIENT
  Sex: Male
  Weight: 32.2 kg

DRUGS (3)
  1. CLEOCIN PEDIATRIC [Suspect]
     Indication: TONSILLECTOMY
     Route: 048
  2. LORTAB [Concomitant]
  3. ALL OTHER THERAPEUTIC PRODUCTS [Concomitant]

REACTIONS (1)
  - BLOOD GLUCOSE INCREASED [None]
